FAERS Safety Report 9116495 (Version 3)
Quarter: 2014Q4

REPORT INFORMATION
  Report Type: Spontaneous
  Country: US (occurrence: US)
  Receive Date: 20130225
  Receipt Date: 20141120
  Transmission Date: 20150529
  Serious: Yes (Other)
  Sender: FDA-Public Use
  Company Number: PHEH2013US003270

PATIENT
  Sex: Female

DRUGS (14)
  1. TYLENOL [Concomitant]
     Active Substance: ACETAMINOPHEN
  2. CALCIUM CHANNEL BLOCKERS [Suspect]
     Active Substance: UNSPECIFIED INGREDIENT
  3. TURMERIC [Concomitant]
     Active Substance: TURMERIC
  4. LUTEIN [Concomitant]
     Active Substance: LUTEIN
     Indication: AGE-RELATED MACULAR DEGENERATION
  5. BABY ASPIRIN [Concomitant]
     Active Substance: ASPIRIN
  6. PEPCID [Concomitant]
     Active Substance: FAMOTIDINE
  7. LOPRESSOR [Suspect]
     Active Substance: METOPROLOL TARTRATE
  8. DIGOXIN. [Concomitant]
     Active Substance: DIGOXIN
  9. MULTI-VITAMINS [Concomitant]
  10. NEORAL [Suspect]
     Active Substance: CYCLOSPORINE
     Indication: BLOOD PRESSURE
     Dosage: 25 MG, QID
     Route: 048
  11. IMURAN [Concomitant]
     Active Substance: AZATHIOPRINE
  12. PREDNISOLONE. [Suspect]
     Active Substance: PREDNISOLONE
     Indication: TRANSPLANT
  13. COUMADINE [Concomitant]
     Active Substance: WARFARIN SODIUM
  14. FOLIC ACID. [Concomitant]
     Active Substance: FOLIC ACID

REACTIONS (9)
  - Atrial fibrillation [Unknown]
  - Product quality issue [Unknown]
  - Renal failure [Unknown]
  - Pain in extremity [Unknown]
  - Type 2 diabetes mellitus [Unknown]
  - Myocardial infarction [Unknown]
  - Blood homocysteine increased [Unknown]
  - Blood pressure increased [Unknown]
  - Tinnitus [Unknown]
